FAERS Safety Report 6063317-3 (Version None)
Quarter: 2009Q1

REPORT INFORMATION
  Report Type: 
  Country: None (occurrence: None)
  Receive Date: 20090203
  Receipt Date: 20090128
  Transmission Date: 20090719
  Serious: Yes (Other)
  Sender: FDA-Public Use
  Company Number: CA-ASTRAZENECA-2009UW02531

PATIENT
  Sex: Female

DRUGS (2)
  1. CRESTOR [Suspect]
     Indication: BLOOD CHOLESTEROL INCREASED
     Dosage: TEMPORARILY STOPPED FOR 4 DAYS
     Route: 048
     Dates: start: 20070101
  2. METFORMIN [Concomitant]

REACTIONS (4)
  - BONE DENSITY DECREASED [None]
  - GALLBLADDER DISORDER [None]
  - HEPATIC PAIN [None]
  - MYALGIA [None]
